FAERS Safety Report 18945871 (Version 1)
Quarter: 2021Q1

REPORT INFORMATION
  Report Type: Spontaneous
  Country: US (occurrence: US)
  Receive Date: 20210226
  Receipt Date: 20210226
  Transmission Date: 20210420
  Serious: No
  Sender: FDA-Public Use
  Company Number: US-INDIVIOR US-INDV-128206-2021

PATIENT

DRUGS (2)
  1. PERSERIS [Suspect]
     Active Substance: RISPERIDONE
     Indication: SYSTEMIC MYCOSIS
     Dosage: UNK, QMO
     Route: 065
  2. PERSERIS [Suspect]
     Active Substance: RISPERIDONE
     Indication: INFECTION PARASITIC

REACTIONS (1)
  - Off label use [Not Recovered/Not Resolved]
